FAERS Safety Report 8425284-4 (Version None)
Quarter: 2012Q2

REPORT INFORMATION
  Report Type: 
  Country: None (occurrence: None)
  Receive Date: 20120611
  Receipt Date: 20120604
  Transmission Date: 20120825
  Serious: Yes (Hospitalization)
  Sender: FDA-Public Use
  Company Number: JP-US-EMD SERONO, INC.-7135371

PATIENT
  Sex: Female
  Weight: 2 kg

DRUGS (2)
  1. GONAL-F [Suspect]
     Indication: OVULATION INDUCTION
     Route: 050
     Dates: start: 20100217, end: 20100301
  2. GONAL-F [Suspect]
     Indication: POLYCYSTIC OVARIES
     Route: 050
     Dates: start: 20100302, end: 20100308

REACTIONS (1)
  - PREMATURE BABY [None]
